FAERS Safety Report 7057361-7 (Version None)
Quarter: 2010Q4

REPORT INFORMATION
  Report Type: 
  Country: None (occurrence: None)
  Receive Date: 20101022
  Receipt Date: 20101019
  Transmission Date: 20110411
  Serious: Yes (Hospitalization)
  Sender: FDA-Public Use
  Company Number: PL-SANOFI-AVENTIS-2010SA063780

PATIENT
  Age: 27 Year
  Sex: Male

DRUGS (2)
  1. FUROSEMIDE [Suspect]
     Indication: DRUG ABUSE
     Dosage: 2 TO 30 TABLETS (NOS)/ DAY, EVERY DAY.
     Route: 048
  2. FUROSEMIDE [Suspect]
     Dosage: 2 TO 30 TABLETS (NOS)/ DAY, EVERY DAY.
     Route: 048

REACTIONS (4)
  - DRUG ABUSE [None]
  - PSEUDO-BARTTER SYNDROME [None]
  - RENAL FAILURE ACUTE [None]
  - TRANSAMINASES INCREASED [None]
